FAERS Safety Report 10364635 (Version 2)
Quarter: 2014Q3

REPORT INFORMATION
  Report Type: Spontaneous
  Country: MY (occurrence: MY)
  Receive Date: 20140806
  Receipt Date: 20140806
  Transmission Date: 20150326
  Serious: Yes (Hospitalization, Other)
  Sender: FDA-Public Use
  Company Number: PHHY2014MY090440

PATIENT
  Age: 8 Year
  Sex: Female
  Weight: 26 kg

DRUGS (2)
  1. CLOZARIL [Suspect]
     Active Substance: CLOZAPINE
     Dosage: 100 MG, UNK
     Route: 048
     Dates: start: 20140720, end: 20140720
  2. CEFTRIAXONE. [Concomitant]
     Active Substance: CEFTRIAXONE
     Indication: MENINGITIS
     Dosage: 1.3 G STAT AND BID
     Route: 042
     Dates: start: 20140721, end: 20140723

REACTIONS (5)
  - Miosis [Recovered/Resolved]
  - Accidental exposure to product by child [Unknown]
  - International normalised ratio increased [Recovered/Resolved]
  - Convulsion [Recovered/Resolved]
  - Unresponsive to stimuli [Recovered/Resolved]

NARRATIVE: CASE EVENT DATE: 20140721
